FAERS Safety Report 24000930 (Version 3)
Quarter: 2024Q4

REPORT INFORMATION
  Report Type: Spontaneous
  Country: JP (occurrence: JP)
  Receive Date: 20240621
  Receipt Date: 20241212
  Transmission Date: 20250115
  Serious: Yes (Other)
  Sender: ALEXION PHARMACEUTICALS
  Company Number: 2024A140639

PATIENT
  Age: 69 Year

DRUGS (3)
  1. ONDEXXYA [Suspect]
     Active Substance: ANDEXANET ALFA
     Indication: Subarachnoid haemorrhage
     Dosage: A METHOD (INTRAVENOUS ADMINISTRATION OF 400 MG AT A RATE OF 30 MG/MIN FOLLOWED BY INTRAVENOUS ADMINI
  2. RIVAROXABAN [Concomitant]
     Active Substance: RIVAROXABAN
     Indication: Atrial fibrillation
     Dosage: NUMBER OF SEPARATE DOSAGES UNKNOWN
  3. RIVAROXABAN [Concomitant]
     Active Substance: RIVAROXABAN
     Dosage: NUMBER OF SEPARATE DOSAGES UNKNOWN

REACTIONS (1)
  - Ruptured cerebral aneurysm [Unknown]
